FAERS Safety Report 4505979-5 (Version None)
Quarter: 2004Q4

REPORT INFORMATION
  Report Type: 
  Country: None (occurrence: None)
  Receive Date: 20041119
  Receipt Date: 20041110
  Transmission Date: 20050328
  Serious: Yes (Hospitalization)
  Sender: FDA-Public Use
  Company Number: PHBS2004JP15202

PATIENT
  Age: 66 Year
  Sex: Male

DRUGS (4)
  1. LUDIOMIL [Suspect]
     Indication: DEPRESSION
     Dosage: 25 MG/D
     Route: 048
  2. LITHIUM CARBONATE [Suspect]
     Indication: ANXIETY
     Dosage: 400 MG/D
     Route: 048
  3. LOXOPROFEN [Suspect]
     Indication: HEADACHE
     Dosage: 180 MG/D
     Route: 048
  4. FLUVOXAMINE MALEATE [Concomitant]
     Indication: DEPRESSION
     Dosage: 75 MG/D
     Route: 048

REACTIONS (5)
  - CONVULSION [None]
  - DEPRESSED LEVEL OF CONSCIOUSNESS [None]
  - MANIA [None]
  - PARKINSONISM [None]
  - THERAPEUTIC AGENT TOXICITY [None]
